FAERS Safety Report 6786262-4 (Version None)
Quarter: 2010Q2

REPORT INFORMATION
  Report Type: 
  Country: None (occurrence: None)
  Receive Date: 20100623
  Receipt Date: 20100616
  Transmission Date: 20101027
  Serious: Yes (Other)
  Sender: FDA-Public Use
  Company Number: IT-ROCHE-709762

PATIENT
  Sex: Female

DRUGS (4)
  1. HERCEPTIN [Suspect]
     Indication: BREAST CANCER
     Dosage: FREQUENCY: CYCLE, REPORTED AS: TRASTUZUMAB/HERCEPTIN
     Route: 042
     Dates: start: 20100122, end: 20100521
  2. NAVELBINE [Suspect]
     Indication: BREAST CANCER
     Dosage: FREQUENCY: CYCLE
     Route: 042
     Dates: start: 20100122, end: 20100521
  3. FLEBOCORTID [Concomitant]
     Route: 065
  4. TRIMETON [Concomitant]

REACTIONS (6)
  - ABDOMINAL PAIN [None]
  - ASTHENIA [None]
  - INTESTINAL OBSTRUCTION [None]
  - LEUKOPENIA [None]
  - OROPHARYNGEAL CANDIDIASIS [None]
  - PYREXIA [None]
